FAERS Safety Report 21211572 (Version 1)
Quarter: 2022Q3

REPORT INFORMATION
  Report Type: Spontaneous
  Country: US (occurrence: None)
  Receive Date: 20220812
  Receipt Date: 20220812
  Transmission Date: 20221027
  Serious: Yes (Disabling, Other)
  Sender: FDA-Public Use
  Company Number: None

PATIENT
  Age: 41 Year
  Sex: Male
  Weight: 66.15 kg

DRUGS (24)
  1. GAMUNEX-C [Suspect]
     Active Substance: HUMAN IMMUNOGLOBULIN G
     Indication: Myasthenia gravis
     Dosage: OTHER QUANTITY : 1 INJECTION(S);?OTHER FREQUENCY : EVERY 4 WEEKS;?
     Route: 042
     Dates: start: 20180813
  2. GAMUNEX-C [Suspect]
     Active Substance: HUMAN IMMUNOGLOBULIN G
     Indication: Myasthenia gravis
     Dosage: OTHER QUANTITY : 2 INJECTION(S);?OTHER FREQUENCY : EVERY 4 WEEKS;?
     Route: 042
     Dates: start: 20180813
  3. Cane [Concomitant]
  4. PREDNISONE [Concomitant]
     Active Substance: PREDNISONE
  5. PYRIDOSTIGMINE [Concomitant]
     Active Substance: PYRIDOSTIGMINE
  6. MYCOPHENOLIC ACID [Concomitant]
     Active Substance: MYCOPHENOLIC ACID
  7. METOPROLOL [Concomitant]
     Active Substance: METOPROLOL
  8. ROSUVASTATIN [Concomitant]
     Active Substance: ROSUVASTATIN
  9. levohyroxine [Concomitant]
  10. Hydroxycholorquine [Concomitant]
  11. Triamcinolon [Concomitant]
  12. TESTOSTERONE CYPIONATE [Concomitant]
     Active Substance: TESTOSTERONE CYPIONATE
  13. PREVIDENT [Concomitant]
     Active Substance: SODIUM FLUORIDE
  14. TYLENOL [Concomitant]
     Active Substance: ACETAMINOPHEN
  15. ASPIRIN [Concomitant]
     Active Substance: ASPIRIN
  16. VITAMIN B12 [Concomitant]
     Active Substance: CYANOCOBALAMIN
  17. CALCIUM [Concomitant]
     Active Substance: CALCIUM
  18. POTASSIUM [Concomitant]
     Active Substance: POTASSIUM
  19. ALLEGRA [Concomitant]
     Active Substance: FEXOFENADINE HYDROCHLORIDE
  20. VITAMIN D3 [Concomitant]
     Active Substance: CHOLECALCIFEROL
  21. VITAMIN C [Concomitant]
     Active Substance: ASCORBIC ACID
  22. FLONASE [Concomitant]
     Active Substance: FLUTICASONE PROPIONATE
  23. BENADRYL [Concomitant]
     Active Substance: DIPHENHYDRAMINE HYDROCHLORIDE
  24. BENEFIBER [Concomitant]
     Active Substance: STARCH, WHEAT

REACTIONS (14)
  - Fatigue [None]
  - Fatigue [None]
  - Infusion related reaction [None]
  - Heart rate increased [None]
  - Nausea [None]
  - Panic attack [None]
  - Presyncope [None]
  - Headache [None]
  - Chest pain [None]
  - Dyspnoea [None]
  - Dysstasia [None]
  - Swollen tongue [None]
  - Nasal congestion [None]
  - Abdominal pain [None]

NARRATIVE: CASE EVENT DATE: 20220811
